FAERS Safety Report 8550166-7 (Version None)
Quarter: 2012Q3

REPORT INFORMATION
  Report Type: 
  Country: None (occurrence: None)
  Receive Date: 20120730
  Receipt Date: 20120719
  Transmission Date: 20120928
  Serious: Yes (Other)
  Sender: FDA-Public Use
  Company Number: US-ACTELION-A-US2012-69060

PATIENT
  Age: 54 Year
  Sex: Male

DRUGS (3)
  1. TRACLEER [Suspect]
     Indication: PULMONARY ARTERIAL HYPERTENSION
     Dosage: 62.5 MG, BID
     Route: 048
  2. TRACLEER [Suspect]
     Dosage: 31.25 MG, QD
     Route: 048
  3. TRACLEER [Suspect]
     Dosage: 62.5 MG, QD
     Route: 048

REACTIONS (3)
  - EXTREMITY CONTRACTURE [None]
  - OEDEMA PERIPHERAL [None]
  - DYSPNOEA [None]
